FAERS Safety Report 18945218 (Version 2)
Quarter: 2021Q2

REPORT INFORMATION
  Report Type: Spontaneous
  Country: US (occurrence: US)
  Receive Date: 20210226
  Receipt Date: 20210423
  Transmission Date: 20210717
  Serious: Yes (Hospitalization)
  Sender: FDA-Public Use
  Company Number: US-ASTRAZENECA-2021A077531

PATIENT
  Age: 777 Month
  Sex: Female
  Weight: 72.6 kg

DRUGS (2)
  1. SYMBICORT [Suspect]
     Active Substance: BUDESONIDE\FORMOTEROL FUMARATE DIHYDRATE
     Indication: ASTHMA
     Dosage: 160/4.5 MCG 120 DOSE, 2 PUFFS TWICE DAILY
     Route: 055
     Dates: start: 202011
  2. SYMBICORT [Suspect]
     Active Substance: BUDESONIDE\FORMOTEROL FUMARATE DIHYDRATE
     Indication: CHRONIC OBSTRUCTIVE PULMONARY DISEASE
     Dosage: 160/4.5 MCG 120 DOSE, 2 PUFFS TWICE DAILY
     Route: 055
     Dates: start: 202011

REACTIONS (9)
  - Device delivery system issue [Unknown]
  - Loss of personal independence in daily activities [Unknown]
  - Fall [Unknown]
  - Intentional product misuse [Unknown]
  - Visual impairment [Unknown]
  - Asthenia [Unknown]
  - Balance disorder [Unknown]
  - Femur fracture [Unknown]
  - Gait disturbance [Unknown]

NARRATIVE: CASE EVENT DATE: 202101
